FAERS Safety Report 5721838-4 (Version None)
Quarter: 2008Q2

REPORT INFORMATION
  Report Type: 
  Country: None (occurrence: None)
  Receive Date: 20080429
  Receipt Date: 20070521
  Transmission Date: 20081010
  Serious: No
  Sender: FDA-Public Use
  Company Number: US-ASTRAZENECA-2007UW12612

PATIENT
  Age: 72 Year
  Sex: Male
  Weight: 79.4 kg

DRUGS (4)
  1. NEXIUM [Suspect]
     Indication: GASTROOESOPHAGEAL REFLUX DISEASE
     Route: 048
     Dates: start: 20070401
  2. PLAVIX [Concomitant]
  3. ASPIRIN [Concomitant]
  4. LOTREL [Concomitant]

REACTIONS (3)
  - ABDOMINAL PAIN UPPER [None]
  - FAECAL VOLUME INCREASED [None]
  - WEIGHT DECREASED [None]
